FAERS Safety Report 4355531-X (Version None)
Quarter: 2004Q2

REPORT INFORMATION
  Report Type: 
  Country: None (occurrence: None)
  Receive Date: 20040510
  Receipt Date: 20040505
  Transmission Date: 20050107
  Serious: Yes (Hospitalization)
  Sender: FDA-Public Use
  Company Number: US-BRISTOL-MYERS SQUIBB COMPANY-12579959

PATIENT
  Age: 74 Year
  Sex: Female

DRUGS (14)
  1. CARBOPLATIN [Suspect]
     Indication: BREAST CANCER METASTATIC
     Dosage: WEEK 2
     Dates: start: 20040325, end: 20040325
  2. TAXOTERE [Suspect]
     Indication: BREAST CANCER METASTATIC
     Dosage: WEEK 2
     Dates: start: 20040325, end: 20040325
  3. ASPIRIN [Concomitant]
  4. TOPROL-XL [Concomitant]
  5. FOLIC ACID [Concomitant]
  6. NEURONTIN [Concomitant]
  7. LIPITOR [Concomitant]
  8. GLUCOPHAGE [Concomitant]
  9. HUMULIN 70/30 [Concomitant]
  10. ZOLOFT [Concomitant]
  11. LOTRISONE [Concomitant]
     Route: 061
  12. LANOXIN [Concomitant]
  13. HYZAAR [Concomitant]
  14. PRILOSEC [Concomitant]

REACTIONS (2)
  - DYSPNOEA [None]
  - SUPRAVENTRICULAR TACHYCARDIA [None]
